FAERS Safety Report 15275996 (Version 1)
Quarter: 2018Q3

REPORT INFORMATION
  Report Type: Spontaneous
  Country: US (occurrence: US)
  Receive Date: 20180727
  Receipt Date: 20180727
  Transmission Date: 20181010
  Serious: No
  Sender: FDA-Public Use
  Company Number: None

PATIENT
  Age: 56 Year
  Sex: Male

DRUGS (10)
  1. ACYCLOVIR. [Concomitant]
     Active Substance: ACYCLOVIR
  2. DEXAMETHASONE. [Concomitant]
     Active Substance: DEXAMETHASONE
  3. MELATONIN [Concomitant]
     Active Substance: MELATONIN
  4. FAMOTIDINE. [Concomitant]
     Active Substance: FAMOTIDINE
  5. VITAMIN D [Concomitant]
     Active Substance: CHOLECALCIFEROL
  6. THIAMINE [Concomitant]
     Active Substance: THIAMINE
  7. ENOXAPARIN [Suspect]
     Active Substance: ENOXAPARIN
     Indication: THROMBOSIS
     Route: 058
     Dates: start: 20180516, end: 20180521
  8. SULFAMETHOXAZOLE/TRIMETHOPRIM [Concomitant]
     Active Substance: SULFAMETHOXAZOLE\TRIMETHOPRIM
  9. PREGABALIN. [Concomitant]
     Active Substance: PREGABALIN
  10. POLYETHYLENE GLYCOL 3350. [Concomitant]
     Active Substance: POLYETHYLENE GLYCOL 3350

REACTIONS (3)
  - Muscle haemorrhage [None]
  - Haemoglobin decreased [None]
  - Hypotension [None]

NARRATIVE: CASE EVENT DATE: 20180522
